FAERS Safety Report 17152939 (Version 2)
Quarter: 2019Q4

REPORT INFORMATION
  Report Type: Report from Study
  Country: US (occurrence: US)
  Receive Date: 20191213
  Receipt Date: 20191223
  Transmission Date: 20200122
  Serious: Yes (Other)
  Sender: FDA-Public Use
  Company Number: US-ASTRAZENECA-2019SF53655

PATIENT
  Age: 62 Year
  Sex: Female
  Weight: 74.8 kg

DRUGS (11)
  1. FASLODEX [Suspect]
     Active Substance: FULVESTRANT
     Indication: INFLAMMATORY CARCINOMA OF THE BREAST
     Dosage: GENERIC
     Route: 065
     Dates: start: 20191024
  2. TAMOXIFEN [Suspect]
     Active Substance: TAMOXIFEN
     Route: 065
  3. ATORVASTATIN [Concomitant]
     Active Substance: ATORVASTATIN
     Indication: BLOOD CHOLESTEROL
  4. VITAMINS B [Concomitant]
  5. MULTIVITAMIN C [Concomitant]
  6. FASLODEX [Suspect]
     Active Substance: FULVESTRANT
     Indication: INFLAMMATORY CARCINOMA OF THE BREAST
     Route: 030
     Dates: start: 2014
  7. ESOMEPRAZOLE MAGNESIUM. [Suspect]
     Active Substance: ESOMEPRAZOLE MAGNESIUM
     Route: 065
  8. VITAMIN D [Concomitant]
     Active Substance: VITAMIN D NOS
  9. NEXIUM [Suspect]
     Active Substance: ESOMEPRAZOLE MAGNESIUM
     Route: 048
  10. NEXIUM [Suspect]
     Active Substance: ESOMEPRAZOLE MAGNESIUM
     Dosage: GENERIC
     Route: 065
     Dates: start: 201802
  11. MULTIVITAMIN [Concomitant]
     Active Substance: VITAMINS

REACTIONS (12)
  - Depressed mood [Unknown]
  - Malaise [Unknown]
  - Bone neoplasm [Unknown]
  - Pain [Unknown]
  - Nausea [Unknown]
  - Dyspnoea [Unknown]
  - Gastritis [Unknown]
  - Hot flush [Not Recovered/Not Resolved]
  - Mobility decreased [Unknown]
  - Dyspepsia [Unknown]
  - Hyperhidrosis [Not Recovered/Not Resolved]
  - Feeling abnormal [Unknown]

NARRATIVE: CASE EVENT DATE: 20191024
